FAERS Safety Report 21625268 (Version 1)
Quarter: 2022Q4

REPORT INFORMATION
  Report Type: Spontaneous
  Country: US (occurrence: US)
  Receive Date: 20221122
  Receipt Date: 20221122
  Transmission Date: 20230113
  Serious: No
  Sender: FDA-Public Use
  Company Number: US-UNITED THERAPEUTICS-UNT-2022-026409

PATIENT
  Sex: Female

DRUGS (6)
  1. REMODULIN [Suspect]
     Active Substance: TREPROSTINIL
     Indication: Pulmonary arterial hypertension
     Dosage: UNK, CONTINUING
     Route: 058
     Dates: start: 20221005
  2. REMODULIN [Suspect]
     Active Substance: TREPROSTINIL
     Dosage: 0.00891 ?G/KG, CONTINUING (AT PUMP RATE OF 28 UL/HR)
     Route: 058
     Dates: start: 202210
  3. REMODULIN [Suspect]
     Active Substance: TREPROSTINIL
     Indication: Pulmonary arterial hypertension
     Dosage: 0.00891 ?G/KG (AT PUMP RATE OF 28 UL/HR), CONTINUING
     Route: 058
     Dates: start: 2022
  4. UPTRAVI [Suspect]
     Active Substance: SELEXIPAG
     Indication: Pulmonary arterial hypertension
     Dosage: 200 ?G, BID
     Route: 048
     Dates: start: 20221025
  5. ADEMPAS [Concomitant]
     Active Substance: RIOCIGUAT
     Indication: Product used for unknown indication
     Dosage: UNK
     Route: 065
  6. OPSUMIT [Concomitant]
     Active Substance: MACITENTAN
     Indication: Product used for unknown indication
     Dosage: UNK
     Route: 065

REACTIONS (3)
  - Infusion site pain [Unknown]
  - Infusion site erythema [Unknown]
  - Dizziness postural [Unknown]

NARRATIVE: CASE EVENT DATE: 20220101
